FAERS Safety Report 7071099-1 (Version None)
Quarter: 2010Q4

REPORT INFORMATION
  Report Type: 
  Country: None (occurrence: None)
  Receive Date: 20101027
  Receipt Date: 20101027
  Transmission Date: 20110411
  Serious: No
  Sender: FDA-Public Use
  Company Number: None

PATIENT
  Age: 6 Month
  Sex: Male
  Weight: 7.7111 kg

DRUGS (1)
  1. HYLAND TEETHING TABLETS HOMEOPATHIC HYLANDS [Suspect]
     Indication: TEETHING
     Dosage: 3 TABLETS 4 TIMES A DAY PO
     Route: 048

REACTIONS (2)
  - AGITATION [None]
  - SOMNOLENCE [None]
